FAERS Safety Report 18529130 (Version 1)
Quarter: 2020Q4

REPORT INFORMATION
  Report Type: Spontaneous
  Country: TR (occurrence: TR)
  Receive Date: 20201120
  Receipt Date: 20201120
  Transmission Date: 20210114
  Serious: Yes (Other)
  Sender: FDA-Public Use
  Company Number: TR-EMD SERONO-9199122

PATIENT
  Age: 54 Year
  Sex: Male
  Weight: 80 kg

DRUGS (3)
  1. CETUXIMAB. [Concomitant]
     Active Substance: CETUXIMAB
     Indication: PRODUCT USED FOR UNKNOWN INDICATION
     Route: 042
  2. BAVENCIO [Suspect]
     Active Substance: AVELUMAB
     Indication: NEUROENDOCRINE CARCINOMA OF THE SKIN
     Route: 042
     Dates: start: 20201105, end: 20201105
  3. IRINOTECAN [Concomitant]
     Active Substance: IRINOTECAN
     Indication: PRODUCT USED FOR UNKNOWN INDICATION
     Route: 042

REACTIONS (3)
  - Skin burning sensation [Unknown]
  - Chills [Recovered/Resolved]
  - Laryngeal oedema [Unknown]

NARRATIVE: CASE EVENT DATE: 202011
